FAERS Safety Report 21621338 (Version 2)
Quarter: 2023Q1

REPORT INFORMATION
  Report Type: Report from Study
  Country: US (occurrence: US)
  Receive Date: 20221121
  Receipt Date: 20230111
  Transmission Date: 20230418
  Serious: No
  Sender: FDA-Public Use
  Company Number: US-ABBVIE-4179179

PATIENT
  Sex: Female

DRUGS (4)
  1. HUMIRA [Suspect]
     Active Substance: ADALIMUMAB
     Indication: Rheumatoid arthritis
     Dosage: CITRATE FREE
     Route: 058
  2. HUMIRA [Suspect]
     Active Substance: ADALIMUMAB
     Indication: Neuropathy peripheral
  3. PFIZER-BIONTECH COVID-19 VACCINE [Concomitant]
     Active Substance: TOZINAMERAN
     Indication: COVID-19 immunisation
     Dosage: ONE IN ONCE?FIRST DOSE
     Route: 030
     Dates: start: 20210115, end: 20210115
  4. PFIZER-BIONTECH COVID-19 VACCINE [Concomitant]
     Active Substance: TOZINAMERAN
     Indication: COVID-19 immunisation
     Dosage: ONE IN ONCE?SECOND DOSE
     Route: 030
     Dates: start: 20210205, end: 20210205

REACTIONS (6)
  - Injection site injury [Not Recovered/Not Resolved]
  - Off label use [Not Recovered/Not Resolved]
  - Injection site erythema [Unknown]
  - Injection site pruritus [Unknown]
  - Injection site papule [Unknown]
  - Injection site induration [Unknown]
